FAERS Safety Report 10171145 (Version 1)
Quarter: 2014Q2

REPORT INFORMATION
  Report Type: Spontaneous
  Country: US (occurrence: None)
  Receive Date: 20140501
  Receipt Date: 20140501
  Transmission Date: 20141212
  Serious: Yes (Other)
  Sender: FDA-Public Use
  Company Number: PHEH2014US000827

PATIENT
  Age: 91 Year
  Sex: Male

DRUGS (8)
  1. ARCAPTA (INDACATEROL) UNKNOWN [Suspect]
  2. NIASPAN [Concomitant]
  3. NEXIUM [Concomitant]
  4. LUTEIN [Concomitant]
  5. ECOTRIN [Concomitant]
  6. COZAAR [Concomitant]
  7. COREG [Concomitant]
  8. ARICEPT [Concomitant]

REACTIONS (1)
  - Headache [None]
